FAERS Safety Report 23919840 (Version 2)
Quarter: 2024Q2

REPORT INFORMATION
  Report Type: Report from Study
  Country: JP (occurrence: JP)
  Receive Date: 20240530
  Receipt Date: 20240621
  Transmission Date: 20240715
  Serious: Yes (Death, Other)
  Sender: FDA-Public Use
  Company Number: JP-OTSUKA-2024_015096AA

PATIENT
  Age: 75 Year
  Sex: Male
  Weight: 57.4 kg

DRUGS (36)
  1. TOLVAPTAN [Suspect]
     Active Substance: TOLVAPTAN
     Indication: Cardiac failure
     Dosage: 8 MG/DAY, ONCE DAILY
     Route: 041
     Dates: start: 20231218, end: 20231218
  2. TOLVAPTAN [Suspect]
     Active Substance: TOLVAPTAN
     Indication: Fluid retention
  3. SAMSCA [Suspect]
     Active Substance: TOLVAPTAN
     Indication: Cardiac failure
     Dosage: 3.75 MG/DAY
     Route: 048
     Dates: start: 20231219, end: 20231225
  4. SAMSCA [Suspect]
     Active Substance: TOLVAPTAN
     Indication: Fluid retention
  5. FUROSEMIDE [Concomitant]
     Active Substance: FUROSEMIDE
     Indication: Product used for unknown indication
     Dosage: 20MG/DAY
     Route: 048
     Dates: start: 20231026, end: 20231225
  6. SPIRONOLACTONE [Concomitant]
     Active Substance: SPIRONOLACTONE
     Indication: Product used for unknown indication
     Dosage: 25MG/DAY
     Route: 048
     Dates: start: 20231028, end: 20231218
  7. SPIRONOLACTONE [Concomitant]
     Active Substance: SPIRONOLACTONE
     Dosage: 12.5MG/DAY
     Route: 048
     Dates: start: 20231219, end: 20231222
  8. FUROSEMIDE [Concomitant]
     Active Substance: FUROSEMIDE
     Indication: Product used for unknown indication
     Dosage: 20MG/DAY
     Route: 050
     Dates: start: 20231212, end: 20231225
  9. FUROSEMIDE [Concomitant]
     Active Substance: FUROSEMIDE
     Dosage: 40MG/DAY
     Route: 050
     Dates: start: 20231218, end: 20231218
  10. FUROSEMIDE [Concomitant]
     Active Substance: FUROSEMIDE
     Dosage: 10MG/DAY
     Route: 050
     Dates: start: 20231224, end: 20231224
  11. FUROSEMIDE [Concomitant]
     Active Substance: FUROSEMIDE
     Dosage: 60MG/DAY
     Route: 050
     Dates: start: 20231227, end: 20231227
  12. FUROSEMIDE [Concomitant]
     Active Substance: FUROSEMIDE
     Dosage: 40MG/DAY
     Route: 050
     Dates: start: 20231228, end: 20231228
  13. BISOPROLOL FUMARATE [Concomitant]
     Active Substance: BISOPROLOL FUMARATE
     Indication: Cardiac failure
     Dosage: UNK
     Route: 048
     Dates: end: 20231222
  14. CANDESARTAN CILEXETIL [Concomitant]
     Active Substance: CANDESARTAN CILEXETIL
     Indication: Product used for unknown indication
     Dosage: UNK
     Route: 048
     Dates: start: 20231026, end: 20231219
  15. EZETIMIBE [Concomitant]
     Active Substance: EZETIMIBE
     Indication: Product used for unknown indication
     Dosage: UNK
     Route: 048
     Dates: start: 20231023, end: 20231219
  16. FEBUXOSTAT [Concomitant]
     Active Substance: FEBUXOSTAT
     Indication: Product used for unknown indication
     Dosage: UNK
     Route: 048
     Dates: start: 20231025, end: 20231219
  17. LIMAPROST [Concomitant]
     Active Substance: LIMAPROST
     Indication: Cardiac failure
     Dosage: UNK
     Route: 048
     Dates: end: 20231219
  18. PEMAFIBRATE [Concomitant]
     Active Substance: PEMAFIBRATE
     Indication: Product used for unknown indication
     Dosage: UNK
     Route: 048
     Dates: end: 20231219
  19. EDOXABAN TOSYLATE [Concomitant]
     Active Substance: EDOXABAN TOSYLATE
     Indication: Cardiac failure
     Dosage: UNK
     Route: 048
     Dates: start: 20231027, end: 20231225
  20. DAYVIGO [Concomitant]
     Active Substance: LEMBOREXANT
     Indication: Product used for unknown indication
     Dosage: UNK
     Route: 048
     Dates: start: 20231213, end: 20231225
  21. RAMELTEON [Concomitant]
     Active Substance: RAMELTEON
     Indication: Product used for unknown indication
     Dosage: UNK
     Route: 048
     Dates: start: 20231215, end: 20231225
  22. BLONANSERIN [Concomitant]
     Active Substance: BLONANSERIN
     Indication: Product used for unknown indication
     Dosage: UNK
     Route: 050
     Dates: start: 20231218, end: 20231228
  23. TRAZODONE HYDROCHLORIDE [Concomitant]
     Active Substance: TRAZODONE HYDROCHLORIDE
     Indication: Product used for unknown indication
     Dosage: UNK
     Route: 048
     Dates: start: 20231218, end: 20231222
  24. POTASSIUM GLUCONATE [Concomitant]
     Active Substance: POTASSIUM GLUCONATE
     Indication: Product used for unknown indication
     Dosage: UNK
     Route: 048
     Dates: start: 20231218, end: 20231222
  25. SODIUM CHLORIDE [Concomitant]
     Active Substance: SODIUM CHLORIDE
     Indication: Product used for unknown indication
     Dosage: UNK
     Route: 048
     Dates: start: 20231218, end: 20231222
  26. PIMOBENDAN [Concomitant]
     Active Substance: PIMOBENDAN
     Indication: Cardiac failure
     Dosage: UNK
     Route: 048
     Dates: start: 20231218, end: 20231225
  27. HUMULIN R [Concomitant]
     Active Substance: INSULIN HUMAN
     Indication: Product used for unknown indication
     Dosage: UNK
     Route: 050
     Dates: start: 20231218, end: 20231218
  28. DOBUTAMINE HYDROCHLORIDE [Concomitant]
     Active Substance: DOBUTAMINE HYDROCHLORIDE
     Indication: Cardiac failure
     Dosage: UNK
     Route: 050
     Dates: start: 20231212, end: 20231228
  29. DEXMEDETOMIDINE HYDROCHLORIDE [Concomitant]
     Active Substance: DEXMEDETOMIDINE HYDROCHLORIDE
     Indication: Prophylaxis
     Dosage: UNK
     Route: 050
     Dates: start: 20231212, end: 20231218
  30. DEXMEDETOMIDINE HYDROCHLORIDE [Concomitant]
     Active Substance: DEXMEDETOMIDINE HYDROCHLORIDE
     Dosage: UNK
     Route: 050
     Dates: start: 20231224, end: 20231228
  31. HEPARIN SODIUM [Concomitant]
     Active Substance: HEPARIN SODIUM
     Indication: Prophylaxis
     Dosage: UNK
     Route: 050
     Dates: start: 20231212, end: 20231218
  32. HEPARIN SODIUM [Concomitant]
     Active Substance: HEPARIN SODIUM
     Dosage: UNK
     Route: 050
     Dates: start: 20231226, end: 20231228
  33. HALOPERIDOL [Concomitant]
     Active Substance: HALOPERIDOL
     Indication: Product used for unknown indication
     Dosage: UNK
     Route: 050
     Dates: start: 20231219, end: 20231219
  34. NOREPINEPHRINE [Concomitant]
     Active Substance: NOREPINEPHRINE\NOREPINEPHRINE BITARTRATE
     Indication: Prophylaxis
     Dosage: UNK
     Route: 050
     Dates: start: 20231224, end: 20231228
  35. LANDIOLOL HYDROCHLORIDE [Concomitant]
     Active Substance: LANDIOLOL HYDROCHLORIDE
     Indication: Cardiac failure
     Dosage: UNK
     Route: 050
     Dates: start: 20231224, end: 20231228
  36. OMEPRAZOLE SODIUM [Concomitant]
     Active Substance: OMEPRAZOLE SODIUM
     Indication: Prophylaxis
     Dosage: UNK
     Route: 050
     Dates: start: 20231225, end: 20231226

REACTIONS (4)
  - Hypernatraemia [Fatal]
  - Pneumonia [Fatal]
  - Underdose [Unknown]
  - Drug monitoring procedure incorrectly performed [Unknown]

NARRATIVE: CASE EVENT DATE: 20231218
